FAERS Safety Report 9430722 (Version 1)
Quarter: 2013Q3

REPORT INFORMATION
  Report Type: Spontaneous
  Country: US (occurrence: None)
  Receive Date: 20130726
  Receipt Date: 20130726
  Transmission Date: 20140515
  Serious: Yes (Death)
  Sender: FDA-Public Use
  Company Number: SYM-2013-07189

PATIENT
  Age: 77 Year
  Sex: Female

DRUGS (9)
  1. XENAZINE (TETRABENAZINE) (TABLET) (TETRABENAZINE) [Suspect]
     Indication: PRODUCT USED FOR UNKNOWN INDICATION
     Dosage: 25 MG, 2 AND HALF TABLET A DAY, ORAL
  2. TRAMADL/APAP (TRAMADOL) (TABLET) (TETRABENAZINE) [Concomitant]
  3. MAGNESIUM-OX (MAGNESIUM OXIDE) (TABLET) (MAGNESIUM OXIDE) [Concomitant]
  4. SPIRONOLACT (SPIRONOLACTONE) (TABLET) (SPIRONOLACTONE) [Concomitant]
  5. ACTONEL (PROMETHAZINE) (TABLET) (PROMETHAZINE) [Concomitant]
  6. ELMIRON (PENTOSAN POLYSULFATE SODIUM) (CAPSULES) (PENTOSAN POLYSULFATE SODIUM) [Concomitant]
  7. MACRODANTIN (NITROFURANTOIN) (CAPSULES) (NITROFURANTOIN) [Concomitant]
  8. PHENERGAN (PROMETHAZINE) (TABLET) (PROMETHAZINE) [Concomitant]
  9. POTASSIUM (POTASSIUM) (TABLET) (POTASSIUM) [Concomitant]

REACTIONS (1)
  - Death [None]
